FAERS Safety Report 10075532 (Version 3)
Quarter: 2014Q2

REPORT INFORMATION
  Report Type: Spontaneous
  Country: FR (occurrence: FR)
  Receive Date: 20140414
  Receipt Date: 20140425
  Transmission Date: 20141212
  Serious: Yes (Life-Threatening)
  Sender: FDA-Public Use
  Company Number: FR-JNJFOC-20140309974

PATIENT
  Age: 56 Year
  Sex: Male

DRUGS (14)
  1. XEPLION [Suspect]
     Indication: HALLUCINATION
     Route: 030
     Dates: start: 20130228, end: 20130328
  2. XEPLION [Suspect]
     Indication: HALLUCINATION
     Route: 030
     Dates: start: 20130328, end: 20130828
  3. XEPLION [Suspect]
     Indication: PERSECUTORY DELUSION
     Route: 030
     Dates: start: 20130228, end: 20130328
  4. XEPLION [Suspect]
     Indication: PERSECUTORY DELUSION
     Route: 030
     Dates: start: 20130328, end: 20130828
  5. MOVILOR [Concomitant]
     Indication: HYPERTENSION
     Dosage: 20 UNSPECIFIED UNITS
     Route: 048
  6. RISPERDAL [Concomitant]
     Indication: PRODUCT USED FOR UNKNOWN INDICATION
     Route: 048
     Dates: start: 20131128
  7. RISPERDAL [Concomitant]
     Indication: PRODUCT USED FOR UNKNOWN INDICATION
     Route: 048
     Dates: start: 201303
  8. DEPAMIDE [Concomitant]
     Indication: AFFECTIVE DISORDER
     Route: 048
  9. VALIUM [Concomitant]
     Indication: PRODUCT USED FOR UNKNOWN INDICATION
     Route: 065
  10. REPAGLINIDE [Concomitant]
     Indication: DIABETES MELLITUS
     Route: 048
     Dates: start: 20130408, end: 20140327
  11. LANTUS [Concomitant]
     Indication: DIABETES MELLITUS
     Dosage: 300 IU/3 ML - 244 UNSPECIFIED UNITS
     Route: 058
  12. METFORMINE [Concomitant]
     Indication: DIABETES MELLITUS
     Dosage: 1000 MG-1.5 TABLET
     Route: 048
     Dates: start: 2012, end: 20140327
  13. NOCTAMIDE [Concomitant]
     Indication: SLEEP DISORDER
     Route: 048
  14. PERINDOPRIL [Concomitant]
     Indication: HYPERTENSION
     Route: 048

REACTIONS (5)
  - Hyponatraemia [Recovered/Resolved]
  - Oedema peripheral [Recovering/Resolving]
  - Off label use [Unknown]
  - Incorrect dose administered [Unknown]
  - Somnolence [Recovered/Resolved]
